FAERS Safety Report 16024643 (Version 7)
Quarter: 2021Q1

REPORT INFORMATION
  Report Type: Report from Study
  Country: US (occurrence: US)
  Receive Date: 20190301
  Receipt Date: 20210128
  Transmission Date: 20210419
  Serious: Yes (Life-Threatening, Hospitalization)
  Sender: FDA-Public Use
  Company Number: US-CELGENEUS-USA-20190209168

PATIENT
  Age: 74 Year
  Sex: Male
  Weight: 82.72 kg

DRUGS (1)
  1. VIDAZA [Suspect]
     Active Substance: AZACITIDINE
     Indication: MYELODYSPLASTIC SYNDROME
     Dosage: 75 MILLIGRAM/SQ. METER
     Route: 058
     Dates: start: 20190128, end: 20190205

REACTIONS (7)
  - Anaemia [Recovered/Resolved]
  - Tachycardia [Not Recovered/Not Resolved]
  - Atrial fibrillation [Recovered/Resolved]
  - Thrombocytopenia [Not Recovered/Not Resolved]
  - Hypotension [Recovered/Resolved]
  - Deep vein thrombosis [Not Recovered/Not Resolved]
  - Pancytopenia [Recovered/Resolved]

NARRATIVE: CASE EVENT DATE: 20190225
